FAERS Safety Report 8600774-X (Version None)
Quarter: 2012Q3

REPORT INFORMATION
  Report Type: 
  Country: None (occurrence: None)
  Receive Date: 20120817
  Receipt Date: 20120814
  Transmission Date: 20120928
  Serious: No
  Sender: FDA-Public Use
  Company Number: US-BAYER-2012-084003

PATIENT

DRUGS (4)
  1. ADVIL [Concomitant]
  2. ALEVE (CAPLET) [Suspect]
     Indication: HEADACHE
     Dosage: UNK
     Route: 048
  3. IBUPROFEN [Concomitant]
  4. ACETAMINOPHEN [Concomitant]

REACTIONS (1)
  - HEADACHE [None]
